FAERS Safety Report 7249729-0 (Version None)
Quarter: 2011Q1

REPORT INFORMATION
  Report Type: 
  Country: None (occurrence: None)
  Receive Date: 20110119
  Receipt Date: 20110119
  Transmission Date: 20110831
  Serious: Yes (Life-Threatening, Hospitalization)
  Sender: FDA-Public Use
  Company Number: None

PATIENT
  Age: 43 Year
  Sex: Female
  Weight: 81.6475 kg

DRUGS (1)
  1. AVELOX [Suspect]
     Indication: UPPER RESPIRATORY TRACT INFECTION
     Dosage: 1 TABLET PER DAY PO
     Route: 048
     Dates: start: 20110106, end: 20110106

REACTIONS (10)
  - DYSPNOEA [None]
  - CHEST PAIN [None]
  - BLOOD PRESSURE INCREASED [None]
  - RESTLESSNESS [None]
  - AGITATION [None]
  - ERYTHEMA [None]
  - EYE PRURITUS [None]
  - NAUSEA [None]
  - EYE BURNS [None]
  - DISORIENTATION [None]
